FAERS Safety Report 22602168 (Version 1)
Quarter: 2023Q2

REPORT INFORMATION
  Report Type: Spontaneous
  Country: US (occurrence: US)
  Receive Date: 20230614
  Receipt Date: 20230614
  Transmission Date: 20230721
  Serious: No
  Sender: FDA-Public Use
  Company Number: US-ABBVIE-5283044

PATIENT
  Sex: Female

DRUGS (1)
  1. QULIPTA [Suspect]
     Active Substance: ATOGEPANT
     Indication: Migraine
     Route: 048

REACTIONS (6)
  - Migraine [Unknown]
  - Hyperacusis [Unknown]
  - Oral pain [Unknown]
  - Nausea [Unknown]
  - Pain in jaw [Unknown]
  - Photosensitivity reaction [Unknown]
